FAERS Safety Report 6386906-5 (Version None)
Quarter: 2009Q4

REPORT INFORMATION
  Report Type: 
  Country: None (occurrence: None)
  Receive Date: 20091001
  Receipt Date: 20091001
  Transmission Date: 20100525
  Serious: Yes (Hospitalization)
  Sender: FDA-Public Use
  Company Number: None

PATIENT
  Age: 28 Year
  Sex: Female

DRUGS (5)
  1. LUDIOMIL [Suspect]
     Indication: DEPRESSION
     Dosage: 10 MG, QD, ORAL
     Dates: start: 20070911, end: 20071012
  2. PURSENNID (NCH) (SENNA GLYCOSIDES (CA SALTS OF PURIFIED SENNA EXTRACT) [Suspect]
     Indication: DEPRESSION
     Dosage: 3 DF, QHS, ORAL
     Route: 048
     Dates: start: 20070911, end: 20071012
  3. DEPAKENE [Suspect]
     Indication: DEPRESSION
     Dosage: 100 MG, BID, ORAL
     Route: 048
     Dates: start: 20070911, end: 20071012
  4. SILECE (FLUNITRAZEPAM) [Suspect]
     Indication: DEPRESSION
     Dosage: 2 DF, QHS, ORAL
     Route: 048
     Dates: start: 20070911
  5. BROTIZOLAM (BROTIZOLAM) [Suspect]
     Indication: DEPRESSION
     Dosage: 2 DF, QHS, ORAL
     Route: 048
     Dates: start: 20070911

REACTIONS (9)
  - ALANINE AMINOTRANSFERASE INCREASED [None]
  - ASPARTATE AMINOTRANSFERASE INCREASED [None]
  - DECREASED ACTIVITY [None]
  - FATIGUE [None]
  - GAMMA-GLUTAMYLTRANSFERASE INCREASED [None]
  - LIVER DISORDER [None]
  - MALAISE [None]
  - MENTAL IMPAIRMENT [None]
  - UNEVALUABLE EVENT [None]
